FAERS Safety Report 5289091-6 (Version None)
Quarter: 2007Q1

REPORT INFORMATION
  Report Type: 
  Country: None (occurrence: None)
  Receive Date: 20070122
  Receipt Date: 20060726
  Transmission Date: 20070707
  Serious: Yes (Other)
  Sender: FDA-Public Use
  Company Number: PHEH2006US09597

PATIENT
  Age: 50 Year
  Sex: Male

DRUGS (1)
  1. SANDOSTATIN LAR [Suspect]
     Dosage: QMO, INJECTION NOS
     Dates: start: 20060501, end: 20060701

REACTIONS (9)
  - ASTHENIA [None]
  - BRONCHITIS [None]
  - DECREASED APPETITE [None]
  - DEPRESSED MOOD [None]
  - DYSPNOEA [None]
  - MALAISE [None]
  - PALLOR [None]
  - PRURITUS [None]
  - SOMNOLENCE [None]
